FAERS Safety Report 25666195 (Version 1)
Quarter: 2025Q3

REPORT INFORMATION
  Report Type: Spontaneous
  Country: CA (occurrence: CA)
  Receive Date: 20250811
  Receipt Date: 20250811
  Transmission Date: 20251020
  Serious: Yes (Death, Life-Threatening, Hospitalization, Disabling, Congenital Anomaly, Other)
  Sender: BOEHRINGER INGELHEIM
  Company Number: CA-BoehringerIngelheim-2025-BI-088123

PATIENT
  Age: 80 Year
  Sex: Male
  Weight: 69 kg

DRUGS (91)
  1. TELMISARTAN [Suspect]
     Active Substance: TELMISARTAN
     Indication: Product used for unknown indication
  2. ALBUTEROL [Suspect]
     Active Substance: ALBUTEROL
     Indication: Chronic obstructive pulmonary disease
  3. ALBUTEROL [Suspect]
     Active Substance: ALBUTEROL
     Indication: Intentional product misuse
  4. ALBUTEROL [Suspect]
     Active Substance: ALBUTEROL
     Indication: Prophylaxis
  5. ALBUTEROL [Suspect]
     Active Substance: ALBUTEROL
     Indication: Off label use
  6. ALBUTEROL [Suspect]
     Active Substance: ALBUTEROL
  7. ALBUTEROL [Suspect]
     Active Substance: ALBUTEROL
  8. ALBUTEROL [Suspect]
     Active Substance: ALBUTEROL
  9. ALBUTEROL [Suspect]
     Active Substance: ALBUTEROL
  10. ALBUTEROL [Suspect]
     Active Substance: ALBUTEROL
  11. ADVAIR HFA [Suspect]
     Active Substance: FLUTICASONE PROPIONATE\SALMETEROL XINAFOATE
     Indication: Product used for unknown indication
  12. UMECLIDINIUM BROMIDE\VILANTEROL TRIFENATATE [Suspect]
     Active Substance: UMECLIDINIUM BROMIDE\VILANTEROL TRIFENATATE
     Indication: Dyspnoea
  13. UMECLIDINIUM BROMIDE\VILANTEROL TRIFENATATE [Suspect]
     Active Substance: UMECLIDINIUM BROMIDE\VILANTEROL TRIFENATATE
  14. BREO ELLIPTA [Suspect]
     Active Substance: FLUTICASONE FUROATE\VILANTEROL TRIFENATATE
     Indication: Dyspnoea
  15. BREO ELLIPTA [Suspect]
     Active Substance: FLUTICASONE FUROATE\VILANTEROL TRIFENATATE
     Indication: Intentional product misuse
  16. BREO ELLIPTA [Suspect]
     Active Substance: FLUTICASONE FUROATE\VILANTEROL TRIFENATATE
     Indication: Nutritional supplementation
  17. BREO ELLIPTA [Suspect]
     Active Substance: FLUTICASONE FUROATE\VILANTEROL TRIFENATATE
     Indication: Off label use
  18. TRELEGY ELLIPTA [Suspect]
     Active Substance: FLUTICASONE FUROATE\UMECLIDINIUM BROMIDE\VILANTEROL TRIFENATATE
     Indication: Blood phosphorus increased
  19. TRELEGY ELLIPTA [Suspect]
     Active Substance: FLUTICASONE FUROATE\UMECLIDINIUM BROMIDE\VILANTEROL TRIFENATATE
     Indication: Intentional product misuse
  20. TRELEGY ELLIPTA [Suspect]
     Active Substance: FLUTICASONE FUROATE\UMECLIDINIUM BROMIDE\VILANTEROL TRIFENATATE
     Indication: Nutritional supplementation
  21. TRELEGY ELLIPTA [Suspect]
     Active Substance: FLUTICASONE FUROATE\UMECLIDINIUM BROMIDE\VILANTEROL TRIFENATATE
     Indication: Off label use
  22. ACETAMINOPHEN [Suspect]
     Active Substance: ACETAMINOPHEN
     Indication: Intentional product misuse
  23. ACETAMINOPHEN [Suspect]
     Active Substance: ACETAMINOPHEN
     Indication: Off label use
  24. ACETAMINOPHEN [Suspect]
     Active Substance: ACETAMINOPHEN
     Indication: Analgesic therapy
  25. ALLOPURINOL [Suspect]
     Active Substance: ALLOPURINOL
     Indication: Blood uric acid increased
  26. ALLOPURINOL [Suspect]
     Active Substance: ALLOPURINOL
     Indication: Intentional product misuse
  27. ALLOPURINOL [Suspect]
     Active Substance: ALLOPURINOL
     Indication: Off label use
  28. ALUMINUM HYDROXIDE\MAGNESIUM HYDROXIDE [Suspect]
     Active Substance: ALUMINUM HYDROXIDE\MAGNESIUM HYDROXIDE
     Indication: Intentional product misuse
  29. ALUMINUM HYDROXIDE\MAGNESIUM HYDROXIDE [Suspect]
     Active Substance: ALUMINUM HYDROXIDE\MAGNESIUM HYDROXIDE
     Indication: Constipation
  30. AMLODIPINE BESYLATE [Suspect]
     Active Substance: AMLODIPINE BESYLATE
     Indication: Product used for unknown indication
  31. BISACODYL [Suspect]
     Active Substance: BISACODYL
     Indication: Ventricular fibrillation
  32. BISACODYL [Suspect]
     Active Substance: BISACODYL
     Indication: Constipation
  33. BISACODYL [Suspect]
     Active Substance: BISACODYL
     Indication: Drug therapy
  34. CALCIUM CARBONATE [Suspect]
     Active Substance: CALCIUM CARBONATE
     Indication: Vitamin supplementation
  35. FURAZOLIDONE [Suspect]
     Active Substance: FURAZOLIDONE
     Indication: Product used for unknown indication
  36. GABAPENTIN [Suspect]
     Active Substance: GABAPENTIN
     Indication: Bacterial infection
  37. GABAPENTIN [Suspect]
     Active Substance: GABAPENTIN
     Indication: Intentional product misuse
  38. GABAPENTIN [Suspect]
     Active Substance: GABAPENTIN
     Indication: Neuralgia
  39. GABAPENTIN [Suspect]
     Active Substance: GABAPENTIN
     Indication: Off label use
  40. HEPARIN CALCIUM [Suspect]
     Active Substance: HEPARIN CALCIUM
     Indication: Anticoagulant therapy
  41. HYDROMORPHONE HYDROCHLORIDE [Suspect]
     Active Substance: HYDROMORPHONE HYDROCHLORIDE
     Indication: Off label use
  42. HYDROMORPHONE HYDROCHLORIDE [Suspect]
     Active Substance: HYDROMORPHONE HYDROCHLORIDE
     Indication: Intentional product misuse
  43. HYDROMORPHONE HYDROCHLORIDE [Suspect]
     Active Substance: HYDROMORPHONE HYDROCHLORIDE
     Indication: Analgesic therapy
  44. HYDROMORPHONE HYDROCHLORIDE [Suspect]
     Active Substance: HYDROMORPHONE HYDROCHLORIDE
  45. HYDROMORPHONE HYDROCHLORIDE [Suspect]
     Active Substance: HYDROMORPHONE HYDROCHLORIDE
  46. HYDROMORPHONE HYDROCHLORIDE [Suspect]
     Active Substance: HYDROMORPHONE HYDROCHLORIDE
  47. HYDROMORPHONE HYDROCHLORIDE [Suspect]
     Active Substance: HYDROMORPHONE HYDROCHLORIDE
  48. HYDROMORPHONE HYDROCHLORIDE [Suspect]
     Active Substance: HYDROMORPHONE HYDROCHLORIDE
  49. HYDROMORPHONE HYDROCHLORIDE [Suspect]
     Active Substance: HYDROMORPHONE HYDROCHLORIDE
  50. HYDROMORPHONE HYDROCHLORIDE [Suspect]
     Active Substance: HYDROMORPHONE HYDROCHLORIDE
  51. METRONIDAZOLE [Suspect]
     Active Substance: METRONIDAZOLE
     Indication: Bacterial infection
  52. METRONIDAZOLE [Suspect]
     Active Substance: METRONIDAZOLE
     Indication: Intentional product misuse
  53. METRONIDAZOLE [Suspect]
     Active Substance: METRONIDAZOLE
     Indication: Off label use
  54. COLCHICINE [Suspect]
     Active Substance: COLCHICINE
     Indication: Product used for unknown indication
  55. HYDROCORTISONE [Suspect]
     Active Substance: HYDROCORTISONE
     Indication: Angioedema
  56. HYDROMORPHONE [Suspect]
     Active Substance: HYDROMORPHONE
     Indication: Analgesic therapy
  57. HYDROMORPHONE [Suspect]
     Active Substance: HYDROMORPHONE
     Indication: Intentional product misuse
  58. HYDROMORPHONE [Suspect]
     Active Substance: HYDROMORPHONE
     Indication: Off label use
  59. NOREPINEPHRINE [Suspect]
     Active Substance: NOREPINEPHRINE
     Indication: Stress
  60. NOREPINEPHRINE [Suspect]
     Active Substance: NOREPINEPHRINE
     Indication: Off label use
  61. NOREPINEPHRINE [Suspect]
     Active Substance: NOREPINEPHRINE
     Indication: Intentional product misuse
  62. ONDANSETRON [Suspect]
     Active Substance: ONDANSETRON
     Indication: Vomiting
  63. ONDANSETRON [Suspect]
     Active Substance: ONDANSETRON
     Indication: Off label use
  64. ONDANSETRON [Suspect]
     Active Substance: ONDANSETRON
     Indication: Nausea
  65. ONDANSETRON [Suspect]
     Active Substance: ONDANSETRON
  66. ONDANSETRON [Suspect]
     Active Substance: ONDANSETRON
  67. PREVACID [Suspect]
     Active Substance: LANSOPRAZOLE
     Indication: Off label use
  68. PREVACID [Suspect]
     Active Substance: LANSOPRAZOLE
     Indication: Intentional product misuse
  69. PREVACID [Suspect]
     Active Substance: LANSOPRAZOLE
     Indication: Gastric pH decreased
  70. PREVACID [Suspect]
     Active Substance: LANSOPRAZOLE
     Indication: Antacid therapy
  71. FLUTICASONE FUROATE [Suspect]
     Active Substance: FLUTICASONE FUROATE
     Indication: Dyspnoea
  72. FLUTICASONE FUROATE [Suspect]
     Active Substance: FLUTICASONE FUROATE
     Indication: Nutritional supplementation
  73. FLUTICASONE FUROATE [Suspect]
     Active Substance: FLUTICASONE FUROATE
     Indication: Intentional product misuse
  74. FLUTICASONE FUROATE [Suspect]
     Active Substance: FLUTICASONE FUROATE
     Indication: Blood phosphorus increased
  75. ALBUTEROL SULFATE [Suspect]
     Active Substance: ALBUTEROL SULFATE
     Indication: Off label use
  76. ALBUTEROL SULFATE [Suspect]
     Active Substance: ALBUTEROL SULFATE
     Indication: Intentional product misuse
  77. ALBUTEROL SULFATE [Suspect]
     Active Substance: ALBUTEROL SULFATE
     Indication: Chronic obstructive pulmonary disease
  78. ALBUTEROL SULFATE [Suspect]
     Active Substance: ALBUTEROL SULFATE
     Indication: Asthma
  79. ALBUTEROL SULFATE [Suspect]
     Active Substance: ALBUTEROL SULFATE
  80. FLUTICASONE PROPIONATE\SALMETEROL XINAFOATE [Suspect]
     Active Substance: FLUTICASONE PROPIONATE\SALMETEROL XINAFOATE
     Indication: Dyspnoea
  81. FLUTICASONE PROPIONATE\SALMETEROL XINAFOATE [Suspect]
     Active Substance: FLUTICASONE PROPIONATE\SALMETEROL XINAFOATE
     Indication: Nutritional supplementation
  82. BETAMETHASONE [Suspect]
     Active Substance: BETAMETHASONE
     Indication: Swelling
  83. BETAMETHASONE [Suspect]
     Active Substance: BETAMETHASONE
     Indication: Off label use
  84. CEFTRIAXONE SODIUM [Suspect]
     Active Substance: CEFTRIAXONE SODIUM
     Indication: Bacterial infection
  85. CEFTRIAXONE SODIUM [Suspect]
     Active Substance: CEFTRIAXONE SODIUM
     Indication: Sepsis
  86. CEFTRIAXONE SODIUM [Suspect]
     Active Substance: CEFTRIAXONE SODIUM
     Indication: Off label use
  87. DIPYRONE [Suspect]
     Active Substance: DIPYRONE
     Indication: Vitamin supplementation
  88. DISTIGMINE BROMIDE [Suspect]
     Active Substance: DISTIGMINE BROMIDE
     Indication: Dyspnoea
  89. DOBUTAMINE [Suspect]
     Active Substance: DOBUTAMINE HYDROCHLORIDE
     Indication: Cardiogenic shock
  90. INSULIN ASPART [Suspect]
     Active Substance: INSULIN ASPART
     Indication: Diabetes mellitus
  91. PENICILLIN V [Suspect]
     Active Substance: PENICILLIN V
     Indication: Product used for unknown indication

REACTIONS (94)
  - Asthma [Fatal]
  - Ascites [Fatal]
  - Aspiration [Fatal]
  - Asthenia [Fatal]
  - Aspartate aminotransferase increased [Fatal]
  - Anticoagulant therapy [Fatal]
  - Bacterial infection [Fatal]
  - Benign prostatic hyperplasia [Fatal]
  - Bronchiectasis [Fatal]
  - Bronchopulmonary aspergillosis allergic [Fatal]
  - Blood calcium increased [Fatal]
  - Blood uric acid increased [Fatal]
  - Blood creatinine increased [Fatal]
  - Blood phosphorus increased [Fatal]
  - Blood test abnormal [Fatal]
  - Chronic obstructive pulmonary disease [Fatal]
  - Condition aggravated [Fatal]
  - Constipation [Fatal]
  - Cardiogenic shock [Fatal]
  - Congenital hiatus hernia [Fatal]
  - Coronary artery disease [Fatal]
  - Drug hypersensitivity [Fatal]
  - Dry mouth [Fatal]
  - Diabetes mellitus [Fatal]
  - Dyspnoea [Fatal]
  - End stage renal disease [Fatal]
  - General physical health deterioration [Fatal]
  - Gastrooesophageal reflux disease [Fatal]
  - Gout [Fatal]
  - Hypophosphataemia [Fatal]
  - Hyperphosphataemia [Fatal]
  - Haemoptysis [Fatal]
  - Hyponatraemia [Fatal]
  - Hyperlipidaemia [Fatal]
  - Hypertension [Fatal]
  - Headache [Fatal]
  - Joint injury [Fatal]
  - Liver function test increased [Fatal]
  - Lung opacity [Fatal]
  - Lower respiratory tract infection [Fatal]
  - Multiple organ dysfunction syndrome [Fatal]
  - Malignant melanoma stage 0 [Fatal]
  - Micturition urgency [Fatal]
  - Myasthenia gravis [Fatal]
  - Musculoskeletal stiffness [Fatal]
  - Nausea [Fatal]
  - Neuralgia [Fatal]
  - Oedema peripheral [Fatal]
  - Obstructive airways disorder [Fatal]
  - Pleural effusion [Fatal]
  - Pain [Fatal]
  - Pulmonary fibrosis [Fatal]
  - Pulmonary mass [Fatal]
  - Rales [Fatal]
  - Sepsis [Fatal]
  - Sleep disorder therapy [Fatal]
  - Somnolence [Fatal]
  - Stress [Fatal]
  - Sputum discoloured [Fatal]
  - Swelling [Fatal]
  - Thrombosis [Fatal]
  - Total lung capacity decreased [Fatal]
  - Transaminases increased [Fatal]
  - Troponin increased [Fatal]
  - Tremor [Fatal]
  - Ulcer [Fatal]
  - Upper respiratory tract infection [Fatal]
  - Vomiting [Fatal]
  - Ventricular fibrillation [Fatal]
  - Antacid therapy [Fatal]
  - Blood cholesterol increased [Fatal]
  - Off label use [Fatal]
  - Intentional product misuse [Fatal]
  - Incorrect route of product administration [Fatal]
  - Drug intolerance [Fatal]
  - Drug ineffective [Fatal]
  - Product use in unapproved indication [Fatal]
  - Product dose omission issue [Fatal]
  - Bacteroides infection [Fatal]
  - Drug therapy [Fatal]
  - Iron deficiency [Fatal]
  - Sleep disorder [Fatal]
  - Pleuritic pain [Fatal]
  - Pneumonia [Fatal]
  - Pulmonary embolism [Fatal]
  - Death [Fatal]
  - Abdominal distension [Fatal]
  - Abdominal pain [Fatal]
  - Analgesic therapy [Fatal]
  - Activated partial thromboplastin time prolonged [Fatal]
  - Anaemia [Fatal]
  - Aortic stenosis [Fatal]
  - Appendicitis [Fatal]
  - Appendicolith [Fatal]
